FAERS Safety Report 23124967 (Version 2)
Quarter: 2023Q4

REPORT INFORMATION
  Report Type: Spontaneous
  Country: US (occurrence: US)
  Receive Date: 20231030
  Receipt Date: 20231101
  Transmission Date: 20240110
  Serious: No
  Sender: FDA-Public Use
  Company Number: US-JNJFOC-20231005571

PATIENT
  Age: 36 Year
  Sex: Female

DRUGS (2)
  1. MENS ROGAINE EXTRA STRENGTH [Suspect]
     Active Substance: MINOXIDIL
     Indication: Alopecia
     Dosage: ONCE A DAY 1 ML PER DROPPER
     Route: 061
     Dates: start: 2023
  2. MENS ROGAINE EXTRA STRENGTH [Suspect]
     Active Substance: MINOXIDIL
     Dosage: ONCE A DAY 1 ML PER DROPPER
     Route: 061
     Dates: start: 202307

REACTIONS (7)
  - Skin wrinkling [Unknown]
  - Swelling face [Unknown]
  - Alopecia [Unknown]
  - Hair growth abnormal [Unknown]
  - Product use issue [Unknown]
  - Intentional product misuse [Unknown]
  - Product use in unapproved indication [Unknown]
